FAERS Safety Report 8566736-6 (Version None)
Quarter: 2012Q3

REPORT INFORMATION
  Report Type: 
  Country: None (occurrence: None)
  Receive Date: 20120803
  Receipt Date: 20120727
  Transmission Date: 20120928
  Serious: Yes (Hospitalization, Other)
  Sender: FDA-Public Use
  Company Number: US-009507513-2011SP058950

PATIENT

DRUGS (1)
  1. NUVARING [Suspect]
     Indication: CONTRACEPTION
     Dates: start: 20070101, end: 20091228

REACTIONS (16)
  - DRUG ABUSE [None]
  - ASTHMA [None]
  - BRONCHITIS [None]
  - CERVICITIS [None]
  - BRONCHIAL HYPERREACTIVITY [None]
  - PNEUMONIA [None]
  - URINARY TRACT INFECTION [None]
  - PULMONARY EMBOLISM [None]
  - INFECTION [None]
  - DEPRESSION [None]
  - FLANK PAIN [None]
  - OBESITY [None]
  - PLEURAL EFFUSION [None]
  - BRONCHITIS VIRAL [None]
  - OVARIAN CYST [None]
  - PELVIC PAIN [None]
